FAERS Safety Report 13422132 (Version 2)
Quarter: 2017Q4

REPORT INFORMATION
  Report Type: Spontaneous
  Country: US (occurrence: US)
  Receive Date: 20170410
  Receipt Date: 20171004
  Transmission Date: 20180320
  Serious: No
  Sender: FDA-Public Use
  Company Number: US-TEVA-757315ACC

PATIENT
  Age: 66 Year
  Sex: Female

DRUGS (13)
  1. COPAXONE [Suspect]
     Active Substance: GLATIRAMER ACETATE
     Indication: MULTIPLE SCLEROSIS
     Route: 058
  2. ATORVASTATIN [Concomitant]
     Active Substance: ATORVASTATIN
  3. GABAPENTIN. [Concomitant]
     Active Substance: GABAPENTIN
  4. NIFEDIPINE. [Concomitant]
     Active Substance: NIFEDIPINE
  5. LOSARTAN POTASSIUM. [Concomitant]
     Active Substance: LOSARTAN POTASSIUM
  6. LOSARTAN. [Concomitant]
     Active Substance: LOSARTAN
  7. COZAAR [Concomitant]
     Active Substance: LOSARTAN POTASSIUM
  8. ASPIRIN. [Concomitant]
     Active Substance: ASPIRIN
  9. VITAMIN D3 [Concomitant]
     Active Substance: CHOLECALCIFEROL
  10. METHIMAZOLE. [Concomitant]
     Active Substance: METHIMAZOLE
  11. DOXYC [Concomitant]
  12. COENZYME [Concomitant]
     Active Substance: UBIDECARENONE
  13. VITAMIN B12 [Concomitant]
     Active Substance: CYANOCOBALAMIN

REACTIONS (4)
  - Memory impairment [Unknown]
  - Muscular weakness [Not Recovered/Not Resolved]
  - Hypertension [Unknown]
  - Dizziness [Unknown]

NARRATIVE: CASE EVENT DATE: 201703
